FAERS Safety Report 17339577 (Version 1)
Quarter: 2020Q1

REPORT INFORMATION
  Report Type: Spontaneous
  Country: NL (occurrence: NL)
  Receive Date: 20200129
  Receipt Date: 20200129
  Transmission Date: 20200409
  Serious: Yes (Other)
  Sender: FDA-Public Use
  Company Number: NL-ACCORD-171043

PATIENT
  Sex: Male

DRUGS (8)
  1. PREGABALIN. [Interacting]
     Active Substance: PREGABALIN
     Indication: LIMB INJURY
     Route: 065
  2. AMITRIPTYLINE [Suspect]
     Active Substance: AMITRIPTYLINE
     Indication: LIMB INJURY
     Route: 065
  3. PARACETAMOL [Interacting]
     Active Substance: ACETAMINOPHEN
     Indication: LIMB INJURY
     Route: 065
  4. AMITRIPTYLINE [Interacting]
     Active Substance: AMITRIPTYLINE
     Indication: NERVE INJURY
     Route: 065
  5. PREGABALIN. [Interacting]
     Active Substance: PREGABALIN
     Indication: NERVE INJURY
     Dosage: UNK UNK, BID
     Route: 065
  6. PREDNISONE. [Suspect]
     Active Substance: PREDNISONE
     Indication: LIMB INJURY
     Route: 065
  7. PREDNISONE. [Suspect]
     Active Substance: PREDNISONE
     Indication: LIMB INJURY
     Route: 065
  8. PARACETAMOL [Interacting]
     Active Substance: ACETAMINOPHEN
     Indication: NERVE INJURY
     Route: 065

REACTIONS (8)
  - Vision blurred [Unknown]
  - Eye irritation [Unknown]
  - Visual impairment [Not Recovered/Not Resolved]
  - Eye disorder [Unknown]
  - Drug interaction [Unknown]
  - Colour blindness acquired [Not Recovered/Not Resolved]
  - Blindness transient [Unknown]
  - Astigmatism [Not Recovered/Not Resolved]
